FAERS Safety Report 20754391 (Version 1)
Quarter: 2022Q2

REPORT INFORMATION
  Report Type: Spontaneous
  Country: US (occurrence: None)
  Receive Date: 20220426
  Receipt Date: 20220426
  Transmission Date: 20220721
  Serious: No
  Sender: FDA-Public Use
  Company Number: US-ROCHE-2947701

PATIENT
  Age: 62 Year
  Sex: Female
  Weight: 72.640 kg

DRUGS (8)
  1. ESBRIET [Suspect]
     Active Substance: PIRFENIDONE
     Indication: Idiopathic pulmonary fibrosis
     Route: 048
     Dates: start: 20210930
  2. ESBRIET [Suspect]
     Active Substance: PIRFENIDONE
     Dosage: ONE PILL
     Route: 048
     Dates: start: 20211004
  3. ESBRIET [Suspect]
     Active Substance: PIRFENIDONE
     Route: 048
  4. FLUOXETINE HYDROCHLORIDE [Concomitant]
     Active Substance: FLUOXETINE HYDROCHLORIDE
  5. LOVASTATIN [Concomitant]
     Active Substance: LOVASTATIN
     Route: 048
  6. CYCLOBENZAPRINE [Concomitant]
     Active Substance: CYCLOBENZAPRINE
  7. TRAZODONE [Concomitant]
     Active Substance: TRAZODONE HYDROCHLORIDE
  8. PANTOPRAZOLE [Concomitant]
     Active Substance: PANTOPRAZOLE

REACTIONS (3)
  - Insomnia [Recovering/Resolving]
  - Rash [Unknown]
  - Pruritus [Unknown]

NARRATIVE: CASE EVENT DATE: 20211101
